FAERS Safety Report 10080436 (Version 1)
Quarter: 2014Q2

REPORT INFORMATION
  Report Type: Spontaneous
  Country: DE (occurrence: DE)
  Receive Date: 20140416
  Receipt Date: 20140416
  Transmission Date: 20141212
  Serious: Yes (Other)
  Sender: FDA-Public Use
  Company Number: GXKR2014DE001421

PATIENT
  Age: 34 Year
  Sex: Female

DRUGS (1)
  1. IBUHEXAL [Suspect]
     Indication: ORAL PAIN
     Dosage: 1 DF, ONCE/SINGLE
     Route: 048

REACTIONS (4)
  - Circulatory collapse [Unknown]
  - Dizziness [Unknown]
  - Vomiting [Unknown]
  - Nausea [Unknown]
